FAERS Safety Report 8649554 (Version 2)
Quarter: 2016Q4

REPORT INFORMATION
  Report Type: Spontaneous
  Country: US (occurrence: US)
  Receive Date: 20120705
  Receipt Date: 20161229
  Transmission Date: 20170207
  Serious: Yes (Other)
  Sender: FDA-Public Use
  Company Number: PHEH2012US011511

PATIENT
  Age: 59 Year
  Sex: Male
  Weight: 93.88 kg

DRUGS (3)
  1. CRESTOR [Concomitant]
     Active Substance: ROSUVASTATIN CALCIUM
     Indication: BLOOD CHOLESTEROL INCREASED
     Dosage: UNK, QD
     Route: 048
     Dates: start: 200812
  2. DIOVAN HCT [Suspect]
     Active Substance: HYDROCHLOROTHIAZIDE\VALSARTAN
     Indication: HYPERTENSION
     Dosage: 1 DF, QD (320 MG VALS AND 12.5 MG HYDR)
     Route: 048
     Dates: start: 201002, end: 20120613
  3. NASONEX [Concomitant]
     Active Substance: MOMETASONE FUROATE
     Indication: RHINITIS
     Dates: start: 200812

REACTIONS (25)
  - Spinal compression fracture [Unknown]
  - Loss of consciousness [Unknown]
  - Balance disorder [Unknown]
  - Nervousness [Unknown]
  - Hyperhidrosis [Unknown]
  - Hypoacusis [Unknown]
  - Tinnitus [Unknown]
  - Sinus congestion [Unknown]
  - Headache [Unknown]
  - Muscular weakness [Unknown]
  - Flushing [Unknown]
  - Feeling jittery [Unknown]
  - Paraesthesia [Unknown]
  - Limb discomfort [Unknown]
  - Musculoskeletal discomfort [Unknown]
  - Neck pain [Unknown]
  - Pollakiuria [Unknown]
  - Road traffic accident [Unknown]
  - Dizziness [Not Recovered/Not Resolved]
  - Confusional state [Unknown]
  - Fatigue [Unknown]
  - Memory impairment [Unknown]
  - Blood pressure fluctuation [Recovering/Resolving]
  - Dehydration [Unknown]
  - Asthenia [Unknown]

NARRATIVE: CASE EVENT DATE: 20120513
